FAERS Safety Report 12246166 (Version 2)
Quarter: 2017Q3

REPORT INFORMATION
  Report Type: Spontaneous
  Country: CA (occurrence: CA)
  Receive Date: 20160407
  Receipt Date: 20170730
  Transmission Date: 20171127
  Serious: Yes (Life-Threatening, Hospitalization, Disabling, Other)
  Sender: FDA-Public Use
  Company Number: CA-ABBVIE-16K-028-1598637-00

PATIENT
  Age: 83 Year
  Sex: Male
  Weight: 77 kg

DRUGS (13)
  1. METRONIDAZOLE. [Suspect]
     Active Substance: METRONIDAZOLE
     Indication: URETHRITIS
     Dosage: GIVEN ONCE THEN DOSED AS PER LEVELS
     Route: 042
     Dates: start: 20150527, end: 20150529
  2. VANCOMYCIN HYDROCHLORIDE USP [Suspect]
     Active Substance: VANCOMYCIN HYDROCHLORIDE
     Indication: KIDNEY INFECTION
     Dosage: GIVEN ONCE THEN DOSED AS PER LEVELS
     Route: 042
     Dates: start: 20150327, end: 20150327
  3. ACYCLOVIR SODIUM. [Suspect]
     Active Substance: ACYCLOVIR SODIUM
     Indication: HERPES SIMPLEX OESOPHAGITIS
     Dosage: Q8H-Q24H THEN BACK TO Q12H
     Route: 042
     Dates: start: 20150523, end: 20150529
  4. METHOTREXATE. [Suspect]
     Active Substance: METHOTREXATE
     Indication: RHEUMATOID ARTHRITIS
     Route: 048
     Dates: start: 20150515, end: 20150529
  5. MYCAMINE [Suspect]
     Active Substance: MICAFUNGIN SODIUM
     Indication: IMMUNODEFICIENCY
  6. MEROPENEM. [Suspect]
     Active Substance: MEROPENEM
     Indication: URINARY TRACT INFECTION
     Dosage: GIVEN ONCE THEN DOSED AS PER LEVELS
     Route: 042
     Dates: start: 20150527, end: 20150529
  7. MEROPENEM. [Suspect]
     Active Substance: MEROPENEM
     Indication: IMMUNODEFICIENCY
  8. METRONIDAZOLE. [Suspect]
     Active Substance: METRONIDAZOLE
     Indication: CLOSTRIDIUM DIFFICILE INFECTION
  9. MYCAMINE [Suspect]
     Active Substance: MICAFUNGIN SODIUM
     Indication: URETHRITIS
     Route: 042
  10. METRONIDAZOLE. [Suspect]
     Active Substance: METRONIDAZOLE
     Indication: IMMUNODEFICIENCY
  11. PREDNISONE. [Suspect]
     Active Substance: PREDNISONE
     Indication: RHEUMATOID ARTHRITIS
     Route: 058
  12. HUMIRA [Suspect]
     Active Substance: ADALIMUMAB
     Indication: RHEUMATOID ARTHRITIS
     Route: 058
     Dates: start: 20150515, end: 20150529
  13. MEROPENEM. [Suspect]
     Active Substance: MEROPENEM
     Indication: PSEUDOMONAS INFECTION

REACTIONS (7)
  - Glomerular filtration rate decreased [Not Recovered/Not Resolved]
  - Anaemia [Recovering/Resolving]
  - Renal failure [Recovering/Resolving]
  - Dysphagia [Recovering/Resolving]
  - Asthenia [Recovering/Resolving]
  - Herpes simplex oesophagitis [Recovering/Resolving]
  - Infection [Not Recovered/Not Resolved]

NARRATIVE: CASE EVENT DATE: 20150523
